FAERS Safety Report 12432584 (Version 3)
Quarter: 2016Q3

REPORT INFORMATION
  Report Type: Report from Study
  Country: US (occurrence: US)
  Receive Date: 20160603
  Receipt Date: 20160801
  Transmission Date: 20161109
  Serious: Yes (Hospitalization)
  Sender: FDA-Public Use
  Company Number: US-BAYER-2016-084057

PATIENT
  Age: 54 Year
  Sex: Male
  Weight: 102.4 kg

DRUGS (2)
  1. ADEMPAS [Suspect]
     Active Substance: RIOCIGUAT
     Indication: PULMONARY ARTERIAL HYPERTENSION
     Dosage: 2.5 MG, TID
     Route: 048
  2. ADEMPAS [Suspect]
     Active Substance: RIOCIGUAT
     Indication: PULMONARY ARTERIAL HYPERTENSION
     Dosage: UNK
     Route: 048
     Dates: start: 20151030

REACTIONS (7)
  - Systemic lupus erythematosus [None]
  - Gastric disorder [None]
  - Gastrointestinal disorder [None]
  - Surgery [None]
  - Fatigue [Unknown]
  - Anxiety [Unknown]
  - Diarrhoea [None]
